FAERS Safety Report 23024268 (Version 1)
Quarter: 2023Q4

REPORT INFORMATION
  Report Type: Spontaneous
  Country: GB (occurrence: GB)
  Receive Date: 20231004
  Receipt Date: 20231004
  Transmission Date: 20240109
  Serious: Yes (Other)
  Sender: FDA-Public Use
  Company Number: GB-AUROBINDO-AUR-APL-2022-007468

PATIENT
  Age: 76 Year
  Sex: Male
  Weight: 82 kg

DRUGS (3)
  1. TERBINAFINE [Suspect]
     Active Substance: TERBINAFINE
     Indication: Adverse drug reaction
     Dosage: 250 MILLIGRAM, ONCE A DAY
     Route: 065
     Dates: start: 202109
  2. TERBINAFINE [Suspect]
     Active Substance: TERBINAFINE
     Indication: Onychomycosis
  3. ROSUVASTATIN [Concomitant]
     Active Substance: ROSUVASTATIN
     Indication: Product used for unknown indication
     Dosage: UNK
     Route: 065
     Dates: start: 202107

REACTIONS (2)
  - Heart rate increased [Not Recovered/Not Resolved]
  - Atrial fibrillation [Unknown]

NARRATIVE: CASE EVENT DATE: 20210901
